FAERS Safety Report 6604593-5 (Version None)
Quarter: 2010Q1

REPORT INFORMATION
  Report Type: 
  Country: None (occurrence: None)
  Receive Date: 20100226
  Receipt Date: 20091215
  Transmission Date: 20100710
  Serious: No
  Sender: FDA-Public Use
  Company Number: A0835190A

PATIENT
  Age: 45 Year
  Sex: Female

DRUGS (6)
  1. LAMICTAL CD [Suspect]
     Indication: BIPOLAR DISORDER
     Dosage: 25MG PER DAY
     Route: 048
     Dates: start: 20091118
  2. PAXIL [Concomitant]
  3. XANAX [Concomitant]
  4. PREDNISONE TAB [Concomitant]
  5. EFFEXOR [Concomitant]
  6. AMBIEN [Concomitant]

REACTIONS (3)
  - HEADACHE [None]
  - PYREXIA [None]
  - VISION BLURRED [None]
